FAERS Safety Report 13252358 (Version 1)
Quarter: 2017Q1

REPORT INFORMATION
  Report Type: Other
  Country: DK (occurrence: DK)
  Receive Date: 20170220
  Receipt Date: 20170220
  Transmission Date: 20170428
  Serious: Yes (Death, Life-Threatening)
  Sender: FDA-Public Use
  Company Number: DK-LUPIN PHARMACEUTICALS INC.-2017-00702

PATIENT
  Age: 84 Year
  Sex: Male
  Weight: 98 kg

DRUGS (9)
  1. SIMVASTATIN. [Suspect]
     Active Substance: SIMVASTATIN
     Indication: COMPLETED SUICIDE
     Route: 048
  2. MIRTAZAPINE. [Suspect]
     Active Substance: MIRTAZAPINE
     Indication: COMPLETED SUICIDE
     Route: 048
  3. METOPROLOL. [Suspect]
     Active Substance: METOPROLOL
     Indication: COMPLETED SUICIDE
     Route: 048
  4. NIFEDIPINE. [Suspect]
     Active Substance: NIFEDIPINE
     Indication: COMPLETED SUICIDE
     Route: 048
  5. ACETYLSALICYLIC ACID [Suspect]
     Active Substance: ASPIRIN
     Indication: COMPLETED SUICIDE
     Route: 048
  6. OXAZEPAM. [Suspect]
     Active Substance: OXAZEPAM
     Indication: COMPLETED SUICIDE
     Route: 048
  7. IVABRADINE [Suspect]
     Active Substance: IVABRADINE
     Indication: COMPLETED SUICIDE
     Route: 048
  8. PARACETAMOL [Suspect]
     Active Substance: ACETAMINOPHEN
     Indication: COMPLETED SUICIDE
     Route: 048
  9. TRANDOLAPRIL. [Suspect]
     Active Substance: TRANDOLAPRIL
     Indication: COMPLETED SUICIDE
     Route: 048

REACTIONS (7)
  - Pneumonia aspiration [Fatal]
  - Oesophageal obstruction [Fatal]
  - Overdose [Fatal]
  - Oesophageal haemorrhage [Fatal]
  - Completed suicide [Fatal]
  - Bezoar [Fatal]
  - Toxicity to various agents [Fatal]
